FAERS Safety Report 25609157 (Version 1)
Quarter: 2025Q3

REPORT INFORMATION
  Report Type: Spontaneous
  Country: US (occurrence: US)
  Receive Date: 20250727
  Receipt Date: 20250727
  Transmission Date: 20251021
  Serious: Yes (Other)
  Sender: SANOFI AVENTIS
  Company Number: US-DialogSolutions-SAAVPROD-PI802482-C1

PATIENT
  Age: 61 Year
  Sex: Male

DRUGS (23)
  1. ANTI-THYMOCYTE GLOBULIN (RABBIT) NOS [Suspect]
     Active Substance: LAPINE T-LYMPHOCYTE IMMUNE GLOBULIN
     Indication: Hypertensive nephropathy
  2. PREDNISONE [Suspect]
     Active Substance: PREDNISONE
     Route: 048
  3. TACROLIMUS [Suspect]
     Active Substance: TACROLIMUS
  4. MYCOPHENOLATE SODIUM [Suspect]
     Active Substance: MYCOPHENOLATE SODIUM
  5. VALGANCICLOVIR [Concomitant]
     Active Substance: VALGANCICLOVIR
  6. AMOXICILLIN\CLAVULANIC ACID [Concomitant]
     Active Substance: AMOXICILLIN\CLAVULANIC ACID
     Indication: Soft tissue swelling
  7. SEMAGLUTIDE [Concomitant]
     Active Substance: SEMAGLUTIDE
     Indication: Hyperglycaemia
     Dosage: UNK UNK, QW
  8. SEMAGLUTIDE [Concomitant]
     Active Substance: SEMAGLUTIDE
     Dosage: UNK UNK, QW
     Route: 058
  9. SODIUM CHLORIDE [Concomitant]
     Active Substance: SODIUM CHLORIDE
     Route: 042
  10. INSULIN NOS [Concomitant]
     Active Substance: INSULIN NOS
     Route: 042
  11. LABETALOL [Concomitant]
     Active Substance: LABETALOL
  12. MIDODRINE [Concomitant]
     Active Substance: MIDODRINE
  13. SULFAMETHOXAZOLE\TRIMETHOPRIM [Concomitant]
     Active Substance: SULFAMETHOXAZOLE\TRIMETHOPRIM
  14. PIPERACILLIN AND TAZOBACTAM [Concomitant]
     Active Substance: PIPERACILLIN SODIUM\TAZOBACTAM SODIUM
  15. LACTATED RINGERS SOLUTION [Concomitant]
     Active Substance: CALCIUM CHLORIDE\POTASSIUM CHLORIDE\SODIUM CHLORIDE\SODIUM LACTATE
     Route: 042
  16. FAMOTIDINE [Concomitant]
     Active Substance: FAMOTIDINE
  17. TAMSULOSIN [Concomitant]
     Active Substance: TAMSULOSIN
  18. METHYLENE BLUE [Concomitant]
     Active Substance: METHYLENE BLUE
  19. NOREPINEPHRINE [Concomitant]
     Active Substance: NOREPINEPHRINE
     Route: 042
  20. VASOPRESSIN [Concomitant]
     Active Substance: VASOPRESSIN
     Route: 042
  21. PROPOFOL [Concomitant]
     Active Substance: PROPOFOL
     Route: 042
  22. FENTANYL [Concomitant]
     Active Substance: FENTANYL
     Route: 042
  23. HYDROCORTISONE [Concomitant]
     Active Substance: HYDROCORTISONE
     Route: 042

REACTIONS (13)
  - Respiratory failure [Unknown]
  - Sinus tachycardia [Unknown]
  - Productive cough [Unknown]
  - Dyspnoea [Unknown]
  - Lung opacity [Unknown]
  - Lethargy [Unknown]
  - Mediastinal disorder [Unknown]
  - Rales [Unknown]
  - Tachycardia [Unknown]
  - Pulmonary oedema [Unknown]
  - Shock [Unknown]
  - Pneumonia [Unknown]
  - Disseminated strongyloidiasis [Unknown]
